FAERS Safety Report 13876978 (Version 1)
Quarter: 2017Q3

REPORT INFORMATION
  Report Type: Spontaneous
  Country: PT (occurrence: PT)
  Receive Date: 20170817
  Receipt Date: 20170817
  Transmission Date: 20171127
  Serious: Yes (Other)
  Sender: FDA-Public Use
  Company Number: PT-ASTRAZENECA-2017SE82738

PATIENT
  Age: 75 Year
  Sex: Male

DRUGS (2)
  1. BRILIQUE [Suspect]
     Active Substance: TICAGRELOR
     Route: 048
     Dates: start: 20160403, end: 20170406
  2. BRILIQUE [Suspect]
     Active Substance: TICAGRELOR
     Route: 048
     Dates: start: 201501

REACTIONS (3)
  - Intentional product misuse [Unknown]
  - Myocardial infarction [Unknown]
  - Anaemia [Unknown]

NARRATIVE: CASE EVENT DATE: 201501
